FAERS Safety Report 22616242 (Version 1)
Quarter: 2023Q2

REPORT INFORMATION
  Report Type: Spontaneous
  Country: DE (occurrence: DE)
  Receive Date: 20230619
  Receipt Date: 20230619
  Transmission Date: 20230721
  Serious: Yes (Hospitalization, Other)
  Sender: FDA-Public Use
  Company Number: None

PATIENT
  Age: 38 Year
  Sex: Female

DRUGS (3)
  1. ORGALUTRAN [Suspect]
     Active Substance: GANIRELIX ACETATE
     Indication: Assisted reproductive technology
     Dosage: UNK
  2. MENOTROPINS [Suspect]
     Active Substance: MENOTROPINS
     Indication: Assisted reproductive technology
     Dosage: 175
  3. ENOXAPARIN SODIUM [Suspect]
     Active Substance: ENOXAPARIN SODIUM
     Dosage: UNK

REACTIONS (2)
  - Abdominal pain [Recovered/Resolved]
  - Circulatory collapse [Recovered/Resolved]

NARRATIVE: CASE EVENT DATE: 20230525
